FAERS Safety Report 20205393 (Version 2)
Quarter: 2022Q1

REPORT INFORMATION
  Report Type: Other
  Country: TR (occurrence: None)
  Receive Date: 20211220
  Receipt Date: 20220114
  Transmission Date: 20220424
  Serious: No
  Sender: FDA-Public Use
  Company Number: TR-ROCHE-2983677

PATIENT
  Age: 44 Year
  Sex: Female
  Weight: 73 kg

DRUGS (8)
  1. OCRELIZUMAB [Suspect]
     Active Substance: OCRELIZUMAB
     Indication: Relapsing-remitting multiple sclerosis
     Route: 042
     Dates: start: 20181218
  2. FAVIMOL [Concomitant]
     Route: 048
     Dates: start: 20211213, end: 20211213
  3. FAVIMOL [Concomitant]
     Route: 048
     Dates: start: 20211214, end: 20211214
  4. ASPIRIN [Concomitant]
     Active Substance: ASPIRIN
     Dosage: YES
     Route: 048
     Dates: start: 20211213
  5. TERA D3 [Concomitant]
     Dosage: YES
     Route: 048
     Dates: start: 20211213
  6. IBUCOLD C [Concomitant]
     Route: 048
     Dates: start: 20211213
  7. MUSCOFLEX DUO [Concomitant]
     Dosage: YES
     Route: 048
     Dates: start: 20211213
  8. A-FERIN FORTE [Concomitant]
     Dosage: YES
     Route: 048
     Dates: start: 20211208

REACTIONS (1)
  - COVID-19 [Recovered/Resolved]

NARRATIVE: CASE EVENT DATE: 20211212
